FAERS Safety Report 19459285 (Version 2)
Quarter: 2021Q3

REPORT INFORMATION
  Report Type: Spontaneous
  Country: SG (occurrence: SG)
  Receive Date: 20210624
  Receipt Date: 20210709
  Transmission Date: 20211014
  Serious: Yes (Hospitalization, Other)
  Sender: FDA-Public Use
  Company Number: SG-B.I. PHARMACEUTICALS,INC./RIDGEFIELD-2021-BI-109004

PATIENT
  Age: 83 Year
  Sex: Male
  Weight: 67.3 kg

DRUGS (1)
  1. PRADAXA [Suspect]
     Active Substance: DABIGATRAN ETEXILATE MESYLATE
     Indication: PRODUCT USED FOR UNKNOWN INDICATION
     Dosage: 75MG BD
     Route: 065
     Dates: end: 20210610

REACTIONS (4)
  - Gait disturbance [Recovering/Resolving]
  - Fall [Recovering/Resolving]
  - Subarachnoid haemorrhage [Recovered/Resolved]
  - Subdural haematoma [Recovering/Resolving]
